FAERS Safety Report 6537756-8 (Version None)
Quarter: 2010Q1

REPORT INFORMATION
  Report Type: 
  Country: None (occurrence: None)
  Receive Date: 20100111
  Receipt Date: 20100105
  Transmission Date: 20100710
  Serious: Yes (Other)
  Sender: FDA-Public Use
  Company Number: 2009SP038281

PATIENT
  Age: 21 Year
  Sex: Female

DRUGS (2)
  1. MIRTAZAPINE [Suspect]
     Indication: DEPRESSION
     Dosage: 15 MG;QD;PO
     Route: 048
     Dates: start: 20090919, end: 20091023
  2. ZOLPIDEM TARTRATE [Concomitant]

REACTIONS (2)
  - ABNORMAL BEHAVIOUR [None]
  - IMPULSIVE BEHAVIOUR [None]
